FAERS Safety Report 7734891-3 (Version None)
Quarter: 2011Q3

REPORT INFORMATION
  Report Type: 
  Country: None (occurrence: None)
  Receive Date: 20110907
  Receipt Date: 20110829
  Transmission Date: 20111222
  Serious: Yes (Other)
  Sender: FDA-Public Use
  Company Number: PHHY2011DE52808

PATIENT
  Sex: Female
  Weight: 85 kg

DRUGS (10)
  1. DOXEPIN [Concomitant]
     Dosage: 25 MG, UNK
  2. GLEEVEC [Suspect]
     Indication: CHRONIC MYELOID LEUKAEMIA
     Dosage: 400 MG, PER DAY
     Route: 048
     Dates: start: 20101101
  3. TAMSULOSIN HCL [Concomitant]
  4. FUROSEMIDE [Concomitant]
     Dosage: 40 MG, UNK
  5. GLEEVEC [Suspect]
     Dosage: DOSE INCREASED
     Route: 048
  6. ALLOPURINOL [Concomitant]
     Dosage: 100 MG, UNK
  7. BISOPROLOL FUMARATE [Concomitant]
     Dosage: 5 MG, UNK
  8. SPIRIVA [Concomitant]
  9. LISINOPRIL [Concomitant]
     Dosage: 10 MG, UNK
  10. OMEPRAZOLE [Concomitant]
     Dosage: 40 MG, UNK

REACTIONS (7)
  - RESTLESS LEGS SYNDROME [None]
  - PARAESTHESIA [None]
  - ASTHENIA [None]
  - FATIGUE [None]
  - HAEMOGLOBIN DECREASED [None]
  - FLUID RETENTION [None]
  - EYE SWELLING [None]
